FAERS Safety Report 5425002-8 (Version None)
Quarter: 2007Q3

REPORT INFORMATION
  Report Type: 
  Country: None (occurrence: None)
  Receive Date: 20070822
  Receipt Date: 20070813
  Transmission Date: 20080115
  Serious: Yes (Hospitalization)
  Sender: FDA-Public Use
  Company Number: 2007AL003398

PATIENT
  Age: 21 Year
  Sex: Male

DRUGS (10)
  1. LORAZEPAM [Suspect]
     Indication: AGITATION
     Dates: start: 20070701
  2. FLUCONAZOLE [Concomitant]
  3. ESOMEPRAZOLE MAGNESIUM [Concomitant]
  4. CLONIDINE [Concomitant]
  5. METHADONE HCL [Concomitant]
  6. FAMOTIDINE [Concomitant]
  7. PETHIDONE [Concomitant]
  8. PAROXETINE [Concomitant]
  9. KEPPRA [Concomitant]
  10. DIAZEPAM [Concomitant]

REACTIONS (3)
  - CONVULSION [None]
  - FEEDING TUBE COMPLICATION [None]
  - PANCREATITIS [None]
